FAERS Safety Report 7640066-9 (Version None)
Quarter: 2011Q3

REPORT INFORMATION
  Report Type: 
  Country: None (occurrence: None)
  Receive Date: 20110727
  Receipt Date: 20110718
  Transmission Date: 20111222
  Serious: Yes (Hospitalization, Other)
  Sender: FDA-Public Use
  Company Number: US-ASTRAZENECA-2011SE42875

PATIENT
  Sex: Male

DRUGS (8)
  1. ASPIRIN [Concomitant]
     Route: 048
  2. ALLOPURINOL [Concomitant]
     Route: 048
  3. PLAVIX [Concomitant]
     Route: 048
  4. FOLIC ACID [Concomitant]
     Route: 048
  5. LOVAZA [Concomitant]
     Route: 048
  6. COZAAR [Concomitant]
     Route: 048
  7. CRESTOR [Suspect]
     Route: 048
  8. BETAPACE AF [Concomitant]
     Route: 048

REACTIONS (12)
  - IMPLANTABLE DEFIBRILLATOR INSERTION [None]
  - CORONARY ARTERY DISEASE [None]
  - CORONARY ARTERIAL STENT INSERTION [None]
  - TESTICULAR NEOPLASM [None]
  - DYSLIPIDAEMIA [None]
  - VENTRICULAR TACHYCARDIA [None]
  - CORONARY ARTERY BYPASS [None]
  - ESSENTIAL HYPERTENSION [None]
  - OEDEMA [None]
  - SLEEP APNOEA SYNDROME [None]
  - COUGH [None]
  - GASTROOESOPHAGEAL REFLUX DISEASE [None]
